FAERS Safety Report 9881779 (Version 1)
Quarter: 2014Q1

REPORT INFORMATION
  Report Type: Spontaneous
  Country: GB (occurrence: GB)
  Receive Date: 20140207
  Receipt Date: 20140207
  Transmission Date: 20141002
  Serious: Yes (Other)
  Sender: FDA-Public Use
  Company Number: GB-WATSON-2014-01753

PATIENT
  Sex: Male

DRUGS (2)
  1. RAMIPRIL (UNKNOWN) [Suspect]
     Indication: PRODUCT USED FOR UNKNOWN INDICATION
     Dosage: UNK
     Route: 065
  2. LOSARTAN TEVA [Suspect]
     Indication: PRODUCT USED FOR UNKNOWN INDICATION
     Dosage: 50 MG, UNKNOWN; TABLET
     Route: 065

REACTIONS (4)
  - Diabetes mellitus inadequate control [Unknown]
  - Fatigue [Unknown]
  - Pain [Unknown]
  - Cough [Unknown]
